FAERS Safety Report 5477200-5 (Version None)
Quarter: 2007Q4

REPORT INFORMATION
  Report Type: 
  Country: None (occurrence: None)
  Receive Date: 20071004
  Receipt Date: 20071004
  Transmission Date: 20080405
  Serious: Yes (Hospitalization)
  Sender: FDA-Public Use
  Company Number: B0486144A

PATIENT
  Age: 60 Year
  Sex: Female

DRUGS (13)
  1. VALTREX [Suspect]
     Indication: HERPES ZOSTER
     Dosage: 500MG PER DAY
     Route: 048
     Dates: start: 20070831, end: 20070902
  2. DIAZEPAM [Concomitant]
     Route: 048
  3. ALLOPURINOL [Concomitant]
     Dosage: 300MG PER DAY
     Route: 048
  4. SAWATENE [Concomitant]
     Route: 048
  5. THEOPHYLLINE [Concomitant]
     Dosage: 400MG PER DAY
     Route: 048
  6. NORVASC [Concomitant]
     Route: 048
  7. OMEPRAZOLE [Concomitant]
     Dosage: 10MG PER DAY
     Route: 048
  8. CALTAN [Concomitant]
     Dosage: 9MG PER DAY
     Route: 048
  9. SULINDAC [Concomitant]
     Dosage: 400MG PER DAY
     Route: 048
  10. SENNOSIDE [Concomitant]
     Dosage: 48MG PER DAY
     Route: 048
  11. GEFANIL [Concomitant]
     Dosage: 200MG PER DAY
     Route: 048
  12. BUSCOPAN [Concomitant]
     Dosage: 20MG PER DAY
     Route: 048
  13. CHLORPHENESIN CARBAMATE [Concomitant]
     Dosage: 500MG PER DAY
     Route: 048

REACTIONS (6)
  - DIZZINESS [None]
  - DYSARTHRIA [None]
  - NERVOUS SYSTEM DISORDER [None]
  - PALPITATIONS [None]
  - TONGUE PARALYSIS [None]
  - TREMOR [None]
